FAERS Safety Report 4348094-6 (Version None)
Quarter: 2004Q1

REPORT INFORMATION
  Report Type: 
  Country: None (occurrence: None)
  Receive Date: 20040325
  Receipt Date: 20040209
  Transmission Date: 20041129
  Serious: No
  Sender: FDA-Public Use
  Company Number: USA040258838

PATIENT
  Age: 48 Year
  Sex: Female

DRUGS (7)
  1. FORTEO [Suspect]
     Indication: OSTEOPOROSIS
     Dosage: 20 UG/DAY
     Dates: start: 20040201
  2. VITAMIN D [Concomitant]
  3. MULTI-VITAMIN [Concomitant]
  4. ASPIRIN ENTERIC COATED K.P. (ACETYLSALICYCLIC ACID) [Concomitant]
  5. ESTRIOL [Concomitant]
  6. PROGESTIN INJ [Concomitant]
  7. VITAMIN B COMPLEX CAP [Concomitant]

REACTIONS (5)
  - DIZZINESS [None]
  - HEART RATE INCREASED [None]
  - INSOMNIA [None]
  - MUSCULOSKELETAL STIFFNESS [None]
  - TREMOR [None]
